FAERS Safety Report 4365963-1 (Version None)
Quarter: 2004Q2

REPORT INFORMATION
  Report Type: 
  Country: None (occurrence: None)
  Receive Date: 20040520
  Receipt Date: 20040505
  Transmission Date: 20050107
  Serious: Yes (Hospitalization, Other)
  Sender: FDA-Public Use
  Company Number: S04-GER-02020-01

PATIENT
  Age: 39 Year
  Sex: Female

DRUGS (12)
  1. SEROPLEX (ESCITALOPRAM) [Suspect]
     Indication: OVERDOSE
     Dosage: 480 MG ONCE PO
     Route: 048
     Dates: start: 20040404, end: 20040404
  2. SEROPLEX (ESCITALOPRAM) [Suspect]
     Indication: MAJOR DEPRESSION
     Dosage: 15 MG QD PO
     Route: 048
     Dates: end: 20040403
  3. SEROPLEX (ESCITALOPRAM) [Suspect]
     Indication: MAJOR DEPRESSION
     Dosage: 15 MG QD PO
     Route: 048
     Dates: start: 20040401, end: 20040505
  4. SEROPLEX (ESCITALOPRAM) [Suspect]
     Indication: MAJOR DEPRESSION
     Dates: start: 20040501
  5. ZYPREXA [Suspect]
     Indication: OVERDOSE
     Dosage: 67 TABLET ONCE PO
     Route: 048
     Dates: start: 20040404, end: 20040404
  6. ZYPREXA [Suspect]
     Dates: end: 20040403
  7. ZYPREXA [Suspect]
     Dosage: 30 MG QD PO
     Route: 048
     Dates: start: 20040401, end: 20040505
  8. ZYPREXA [Suspect]
     Dates: start: 20040501
  9. DOXEPIN HCL [Suspect]
     Indication: OVERDOSE
     Dosage: 20 TABLET ONCE PO
     Route: 048
     Dates: start: 20040404, end: 20040404
  10. ATHYMIL (MIANSERIN HYDROCHLORIDE) [Suspect]
     Indication: MAJOR DEPRESSION
     Dates: end: 20040505
  11. CITALOPRAM HYDROBROMIDE [Concomitant]
  12. CLONAZEPAM [Concomitant]

REACTIONS (12)
  - ATRIOVENTRICULAR BLOCK [None]
  - BRADYCARDIA [None]
  - COMA [None]
  - CYANOSIS [None]
  - ELECTROCARDIOGRAM QT PROLONGED [None]
  - HYPOTENSION [None]
  - MALAISE [None]
  - MULTIPLE DRUG OVERDOSE INTENTIONAL [None]
  - PALLOR [None]
  - SUICIDE ATTEMPT [None]
  - SYNCOPE VASOVAGAL [None]
  - VERTIGO [None]
